FAERS Safety Report 14383229 (Version 2)
Quarter: 2018Q3

REPORT INFORMATION
  Report Type: Report from Study
  Country: ES (occurrence: ES)
  Receive Date: 20180115
  Receipt Date: 20180808
  Transmission Date: 20181010
  Serious: Yes (Other)
  Sender: FDA-Public Use
  Company Number: ES-TEVA-2018-ES-842869

PATIENT
  Age: 38 Year
  Sex: Male

DRUGS (9)
  1. EFENSOL [Concomitant]
     Indication: DIARRHOEA
     Route: 065
  2. ORFIDAL [Concomitant]
     Active Substance: LORAZEPAM
     Route: 065
  3. IDEOS UNIDIA [Concomitant]
     Active Substance: CALCIUM CARBONATE\CHOLECALCIFEROL
     Route: 065
  4. DESLORATADINA [Concomitant]
     Active Substance: DESLORATADINE
     Indication: SEASONAL ALLERGY
     Route: 065
  5. MLN0002 [Suspect]
     Active Substance: VEDOLIZUMAB
     Indication: CROHN^S DISEASE
     Dosage: 300 MG EVERY 8 WEEKS
     Route: 042
     Dates: start: 201607
  6. SERTRALINE [Suspect]
     Active Substance: SERTRALINE HYDROCHLORIDE
     Indication: PRODUCT USED FOR UNKNOWN INDICATION
     Route: 065
  7. CYANOCOBALAMIN. [Concomitant]
     Active Substance: CYANOCOBALAMIN
     Route: 065
  8. FISIOGEN FERRO FORTE [Concomitant]
     Indication: BLOOD IRON DECREASED
     Route: 065
  9. OMEPRAZOL [Concomitant]
     Active Substance: OMEPRAZOLE
     Route: 065

REACTIONS (16)
  - Pruritus [Unknown]
  - Aphonia [Unknown]
  - Dizziness [Recovered/Resolved]
  - Hypersensitivity [Recovered/Resolved]
  - Eye disorder [Unknown]
  - Dry eye [Unknown]
  - Frequent bowel movements [Recovered/Resolved]
  - Fatigue [Unknown]
  - Muscle spasms [Recovered/Resolved]
  - Vitamin C deficiency [Unknown]
  - Headache [Recovered/Resolved]
  - Nausea [Recovered/Resolved]
  - Arthralgia [Unknown]
  - Eye pain [Unknown]
  - Scab [Recovered/Resolved]
  - Malaise [Recovered/Resolved]

NARRATIVE: CASE EVENT DATE: 20170407
